FAERS Safety Report 9465465 (Version 2)
Quarter: 2013Q3

REPORT INFORMATION
  Report Type: Spontaneous
  Country: US (occurrence: US)
  Receive Date: 20130820
  Receipt Date: 20130917
  Transmission Date: 20140515
  Serious: Yes (Other)
  Sender: FDA-Public Use
  Company Number: US-009507513-1308USA005378

PATIENT
  Age: 53 Year
  Sex: Male

DRUGS (5)
  1. VYTORIN [Suspect]
     Indication: HYPERLIPIDAEMIA
     Dosage: 10/20 MG, ONCE PER EVENING
     Route: 048
     Dates: start: 2006
  2. PROSCAR [Concomitant]
     Route: 048
  3. JANUMET [Concomitant]
     Route: 048
  4. NEXIUM [Concomitant]
     Route: 048
  5. METHYLPREDNISOLONE [Concomitant]
     Route: 048

REACTIONS (9)
  - Surgery [Unknown]
  - Pain [Recovered/Resolved]
  - Myalgia [Recovered/Resolved]
  - Myalgia [Not Recovered/Not Resolved]
  - Gait disturbance [Not Recovered/Not Resolved]
  - Pain in extremity [Not Recovered/Not Resolved]
  - Musculoskeletal pain [Not Recovered/Not Resolved]
  - Abdominal pain [Not Recovered/Not Resolved]
  - Polymyositis [Unknown]
